FAERS Safety Report 6179382-9 (Version None)
Quarter: 2009Q2

REPORT INFORMATION
  Report Type: 
  Country: None (occurrence: None)
  Receive Date: 20090501
  Receipt Date: 20090501
  Transmission Date: 20091009
  Serious: No
  Sender: FDA-Public Use
  Company Number: None

PATIENT
  Age: 53 Year
  Sex: Female

DRUGS (6)
  1. LISINOPRIL [Suspect]
  2. AMLODIPINE [Suspect]
  3. METOPROLOL SUCCINATE [Suspect]
  4. METOPROLOL TARTRATE [Suspect]
  5. FUROSEMIDE [Suspect]
  6. PRAVASTATIN KCL [Suspect]

REACTIONS (3)
  - HEADACHE [None]
  - NAUSEA [None]
  - RASH [None]
